FAERS Safety Report 25334976 (Version 1)
Quarter: 2025Q2

REPORT INFORMATION
  Report Type: Spontaneous
  Country: CN (occurrence: CN)
  Receive Date: 20250520
  Receipt Date: 20250520
  Transmission Date: 20250717
  Serious: Yes (Other)
  Sender: BAXTER
  Company Number: None

PATIENT
  Age: 6 Year
  Sex: Male
  Weight: 20.5 kg

DRUGS (12)
  1. CYCLOPHOSPHAMIDE [Suspect]
     Active Substance: CYCLOPHOSPHAMIDE
     Indication: Acute lymphocytic leukaemia
     Dosage: 0.16 G, BID, INJECTION
     Route: 041
     Dates: start: 20250422, end: 20250424
  2. SODIUM CHLORIDE [Suspect]
     Active Substance: SODIUM CHLORIDE
     Route: 041
     Dates: start: 20250422, end: 20250424
  3. SODIUM CHLORIDE [Suspect]
     Active Substance: SODIUM CHLORIDE
     Route: 041
     Dates: start: 20250425
  4. PEGASPARGASE [Suspect]
     Active Substance: PEGASPARGASE
     Indication: Acute lymphocytic leukaemia
     Dosage: 2.6 ML, QD
     Route: 030
     Dates: start: 20250426, end: 20250426
  5. VINCRISTINE SULFATE [Suspect]
     Active Substance: VINCRISTINE SULFATE
     Indication: Acute lymphocytic leukaemia
     Dosage: 1.2 MG, QD
     Route: 042
     Dates: start: 20250421, end: 20250426
  6. CYTARABINE [Suspect]
     Active Substance: CYTARABINE
     Indication: Acute lymphocytic leukaemia
     Dosage: 1.6 G, BID Q12H
     Route: 041
     Dates: start: 20250425, end: 20250425
  7. METHOTREXATE [Suspect]
     Active Substance: METHOTREXATE
     Indication: Acute lymphocytic leukaemia
     Dosage: 4 G, QD
     Route: 041
     Dates: start: 20250421, end: 20250422
  8. METHOTREXATE [Suspect]
     Active Substance: METHOTREXATE
     Dosage: 4 G, QD
     Route: 041
     Dates: start: 20250426
  9. SODIUM CHLORIDE [Suspect]
     Active Substance: SODIUM CHLORIDE
     Indication: Medication dilution
     Dosage: 84 ML, BID (PUMP INJECTION ONCE) + METHOTREXATE
     Route: 041
     Dates: start: 20250421, end: 20250422
  10. SODIUM CHLORIDE [Suspect]
     Active Substance: SODIUM CHLORIDE
     Dosage: 84 ML, BID (PUMP INJECTION ONCE) + METHOTREXATE
     Route: 041
     Dates: start: 20250426
  11. SODIUM CHLORIDE [Suspect]
     Active Substance: SODIUM CHLORIDE
     Dosage: 3 ML, QD + VINCRISTINE
     Route: 042
     Dates: start: 20250421, end: 20250426
  12. DEXTROSE [Suspect]
     Active Substance: DEXTROSE MONOHYDRATE
     Indication: Medication dilution
     Dosage: 250 ML, BID
     Route: 041
     Dates: start: 20250425, end: 20250425

REACTIONS (1)
  - Myelosuppression [Recovering/Resolving]

NARRATIVE: CASE EVENT DATE: 20250501
